FAERS Safety Report 23048245 (Version 1)
Quarter: 2023Q4

REPORT INFORMATION
  Report Type: Spontaneous
  Country: US (occurrence: US)
  Receive Date: 20231010
  Receipt Date: 20231010
  Transmission Date: 20240110
  Serious: Yes (Other)
  Sender: FDA-Public Use
  Company Number: US-AMGEN-USASP2023176445

PATIENT

DRUGS (1)
  1. REPATHA [Suspect]
     Active Substance: EVOLOCUMAB
     Indication: Blood cholesterol increased
     Dosage: UNK
     Route: 065
     Dates: start: 201602

REACTIONS (7)
  - Aneurysm [Unknown]
  - Muscle swelling [Unknown]
  - Tendonitis [Unknown]
  - Pain in extremity [Unknown]
  - Injection site swelling [Recovered/Resolved]
  - Back pain [Unknown]
  - Arthralgia [Unknown]
